FAERS Safety Report 9182527 (Version 1)
Quarter: 2013Q1

REPORT INFORMATION
  Report Type: Spontaneous
  Country: US (occurrence: US)
  Receive Date: 20130322
  Receipt Date: 20130322
  Transmission Date: 20140127
  Serious: Yes (Other)
  Sender: FDA-Public Use
  Company Number: US-BRISTOL-MYERS SQUIBB COMPANY-16798928

PATIENT
  Age: 62 Year
  Sex: Female

DRUGS (1)
  1. ERBITUX [Suspect]
     Indication: HEAD AND NECK CANCER
     Dosage: 11 WKLY INF WITH 5 WKS OF RADIATION THERAPY.WKLY INF 2 WKS,OFF 4WKS:JAN12.NOW ON12COUR OF WKLY INF
     Dates: start: 201009

REACTIONS (1)
  - Malignant neoplasm progression [Not Recovered/Not Resolved]
